FAERS Safety Report 13598436 (Version 1)
Quarter: 2017Q2

REPORT INFORMATION
  Report Type: Spontaneous
  Country: US (occurrence: US)
  Receive Date: 20170531
  Receipt Date: 20170531
  Transmission Date: 20170830
  Serious: Yes (Other)
  Sender: FDA-Public Use
  Company Number: None

PATIENT
  Age: 37 Year
  Sex: Female
  Weight: 76.32 kg

DRUGS (1)
  1. BUPRENORPHINE HCL-NALOXONE HCL 8-2MG [Suspect]
     Active Substance: BUPRENORPHINE\NALOXONE
     Indication: DRUG USE DISORDER
     Route: 060
     Dates: start: 20170505, end: 20170530

REACTIONS (4)
  - Dizziness [None]
  - Asthenia [None]
  - Nausea [None]
  - Drug use disorder [None]

NARRATIVE: CASE EVENT DATE: 20170506
